FAERS Safety Report 6634494-8 (Version None)
Quarter: 2010Q1

REPORT INFORMATION
  Report Type: 
  Country: None (occurrence: None)
  Receive Date: 20100315
  Receipt Date: 20100308
  Transmission Date: 20100710
  Serious: Yes (Other)
  Sender: FDA-Public Use
  Company Number: US-ROCHE-690088

PATIENT

DRUGS (3)
  1. PEG-INTERFERON ALFA 2A (RO 25-8310) [Suspect]
     Route: 058
  2. RIBAVIRIN [Suspect]
     Dosage: DOSE: 1000-1200 MG EVERYDAY
     Route: 048
  3. MERIMEPODIB [Suspect]
     Route: 048

REACTIONS (1)
  - AMNESIA [None]
